FAERS Safety Report 26093771 (Version 1)
Quarter: 2025Q4

REPORT INFORMATION
  Report Type: Spontaneous
  Country: US (occurrence: US)
  Receive Date: 20251126
  Receipt Date: 20251126
  Transmission Date: 20260118
  Serious: No
  Sender: DAIICHI
  Company Number: US-DAIICHI SANKYO, INC.-DS-2025-177640-USAA

PATIENT
  Sex: Female

DRUGS (2)
  1. DATROWAY [Suspect]
     Active Substance: DATOPOTAMAB DERUXTECAN-DLNK
     Indication: Product used for unknown indication
     Dosage: 484 MG, ONCE EVERY 3 WK
     Route: 042
     Dates: start: 20250930, end: 20250930
  2. DATROWAY [Suspect]
     Active Substance: DATOPOTAMAB DERUXTECAN-DLNK
     Dosage: 538 MG, ONCE EVERY 3 WK
     Route: 042
     Dates: start: 20251117, end: 20251117

REACTIONS (1)
  - Weight increased [Not Recovered/Not Resolved]
